FAERS Safety Report 6141529-8 (Version None)
Quarter: 2009Q2

REPORT INFORMATION
  Report Type: 
  Country: None (occurrence: None)
  Receive Date: 20090401
  Receipt Date: 20090401
  Transmission Date: 20091009
  Serious: No
  Sender: FDA-Public Use
  Company Number: None

PATIENT
  Age: 25 Year
  Sex: Female
  Weight: 81.6475 kg

DRUGS (1)
  1. MIRENA [Suspect]
     Indication: CONTRACEPTION
     Dosage: INTRA-UTERINE
     Route: 015
     Dates: start: 20080313, end: 20090307

REACTIONS (3)
  - HAEMORRHAGE [None]
  - INTRA-UTERINE CONTRACEPTIVE DEVICE EXPELLED [None]
  - THROMBOSIS [None]
